FAERS Safety Report 4609435-5 (Version None)
Quarter: 2005Q1

REPORT INFORMATION
  Report Type: 
  Country: None (occurrence: None)
  Receive Date: 20050314
  Receipt Date: 20050302
  Transmission Date: 20050727
  Serious: Yes (Hospitalization)
  Sender: FDA-Public Use
  Company Number: 2005024844

PATIENT
  Age: 67 Year
  Sex: Male

DRUGS (5)
  1. XALATAN [Suspect]
     Indication: OCULAR HYPERTENSION
     Dosage: 1 DROP (1 IN1 D), INTRAOCULAR
     Route: 031
     Dates: start: 19990524
  2. TIMOLOL MALEATE [Concomitant]
  3. ALLOPURINOL [Concomitant]
  4. BEZAFIBRATE (BEZAFIBRATE) [Concomitant]
  5. CYANIOCOBALAMIN (CYANOCOBALAMIN) [Concomitant]

REACTIONS (2)
  - DIZZINESS [None]
  - LOSS OF CONSCIOUSNESS [None]
